FAERS Safety Report 18919973 (Version 1)
Quarter: 2021Q1

REPORT INFORMATION
  Report Type: Other
  Country: US (occurrence: US)
  Receive Date: 20210222
  Receipt Date: 20210222
  Transmission Date: 20210420
  Serious: No
  Sender: FDA-Public Use
  Company Number: US-EPICPHARMA-US-2021EPCOTHER00156

PATIENT
  Age: 48 Year
  Sex: Female

DRUGS (5)
  1. HYDROXYZINE HYDROCHLORIDE. [Suspect]
     Active Substance: HYDROXYZINE HYDROCHLORIDE
     Indication: URTICARIA
  2. HYDROXYZINE HYDROCHLORIDE. [Suspect]
     Active Substance: HYDROXYZINE HYDROCHLORIDE
     Indication: SWELLING
  3. PREDNISONE. [Concomitant]
     Active Substance: PREDNISONE
     Indication: ERYTHEMA
  4. HYDROXYZINE HYDROCHLORIDE. [Suspect]
     Active Substance: HYDROXYZINE HYDROCHLORIDE
     Indication: ERYTHEMA
     Route: 048
     Dates: start: 20210106
  5. PREDNISONE. [Concomitant]
     Active Substance: PREDNISONE
     Indication: SWELLING
     Route: 065

REACTIONS (1)
  - Drug ineffective [Unknown]

NARRATIVE: CASE EVENT DATE: 20210106
